FAERS Safety Report 10300849 (Version 1)
Quarter: 2014Q3

REPORT INFORMATION
  Report Type: Spontaneous
  Country: HK (occurrence: HK)
  Receive Date: 20140714
  Receipt Date: 20140714
  Transmission Date: 20150326
  Serious: Yes (Other)
  Sender: FDA-Public Use
  Company Number: HK-PAR PHARMACEUTICAL, INC-2014SCPR009239

PATIENT

DRUGS (21)
  1. ALCOHOL. [Suspect]
     Active Substance: ALCOHOL
     Indication: SUICIDE ATTEMPT
  2. METHYLENEDIOXY-N-METHAMPHETAMINE [Suspect]
     Active Substance: METHYLENEDIOXYMETHAMPHETAMINE
     Indication: SUICIDE ATTEMPT
  3. METHAMPHETAMINE [Suspect]
     Active Substance: METHAMPHETAMINE
     Indication: PRODUCT USED FOR UNKNOWN INDICATION
  4. BENZODIAZEPINE DERIVATIVES [Suspect]
     Active Substance: BENZODIAZEPINE
     Indication: SUICIDE ATTEMPT
  5. BENZODIAZEPINE DERIVATIVES [Suspect]
     Active Substance: BENZODIAZEPINE
     Indication: PRODUCT USED FOR UNKNOWN INDICATION
  6. METHAMPHETAMINE [Suspect]
     Active Substance: METHAMPHETAMINE
     Indication: SUICIDE ATTEMPT
  7. COCAINE [Suspect]
     Active Substance: COCAINE
     Indication: PRODUCT USED FOR UNKNOWN INDICATION
  8. KETALAR [Suspect]
     Active Substance: KETAMINE HYDROCHLORIDE
     Indication: DRUG DIVERSION
     Dosage: UNK, UNKNOWN
  9. KETALAR [Suspect]
     Active Substance: KETAMINE HYDROCHLORIDE
     Indication: PRODUCT USED FOR UNKNOWN INDICATION
     Dosage: UNK, UNKNOWN
     Route: 065
  10. ALCOHOL. [Suspect]
     Active Substance: ALCOHOL
     Indication: DRUG DIVERSION
     Dosage: UNK, UNKNOWN
     Route: 065
  11. ALCOHOL. [Suspect]
     Active Substance: ALCOHOL
     Indication: PRODUCT USED FOR UNKNOWN INDICATION
  12. METHAMPHETAMINE [Suspect]
     Active Substance: METHAMPHETAMINE
     Indication: DRUG DIVERSION
     Dosage: UNK, UNKNOWN
     Route: 065
  13. ZOPICLONE [Suspect]
     Active Substance: ZOPICLONE
     Indication: SUICIDE ATTEMPT
  14. COCAINE [Suspect]
     Active Substance: COCAINE
     Indication: SUICIDE ATTEMPT
  15. ZOPICLONE [Suspect]
     Active Substance: ZOPICLONE
     Indication: PRODUCT USED FOR UNKNOWN INDICATION
  16. METHYLENEDIOXY-N-METHAMPHETAMINE [Suspect]
     Active Substance: METHYLENEDIOXYMETHAMPHETAMINE
     Indication: DRUG DIVERSION
     Dosage: UNK, UNKNOWN
     Route: 065
  17. METHYLENEDIOXY-N-METHAMPHETAMINE [Suspect]
     Active Substance: METHYLENEDIOXYMETHAMPHETAMINE
     Indication: PRODUCT USED FOR UNKNOWN INDICATION
  18. BENZODIAZEPINE DERIVATIVES [Suspect]
     Active Substance: BENZODIAZEPINE
     Indication: DRUG DIVERSION
     Dosage: UNK, UNKNOWN
     Route: 065
  19. COCAINE [Suspect]
     Active Substance: COCAINE
     Indication: DRUG DIVERSION
     Dosage: UNK, UNKNOWN
     Route: 065
  20. KETALAR [Suspect]
     Active Substance: KETAMINE HYDROCHLORIDE
     Indication: SUICIDE ATTEMPT
     Dosage: UNK, UNKNOWN
     Route: 048
  21. ZOPICLONE [Suspect]
     Active Substance: ZOPICLONE
     Indication: DRUG DIVERSION
     Dosage: UNK, UNKNOWN
     Route: 065

REACTIONS (39)
  - Suicide attempt [Unknown]
  - Hyperthermia [Unknown]
  - Muscle spasms [Unknown]
  - Alanine aminotransferase increased [None]
  - Blood alkaline phosphatase increased [None]
  - Chest pain [Unknown]
  - Dyspnoea [Unknown]
  - Irritability [Unknown]
  - Hydronephrosis [Unknown]
  - Chest discomfort [Unknown]
  - Micturition urgency [Unknown]
  - Injury [Unknown]
  - Vomiting [Unknown]
  - Blood creatine phosphokinase increased [None]
  - Thrombocytosis [Unknown]
  - Hypertension [Unknown]
  - Renal function test abnormal [Unknown]
  - Biliary dilatation [Unknown]
  - Liver function test abnormal [Unknown]
  - Leukocytosis [Unknown]
  - Drug abuse [Unknown]
  - Agitation [Unknown]
  - Abdominal tenderness [Unknown]
  - Hallucination [Unknown]
  - Lower urinary tract symptoms [None]
  - Blood creatinine increased [None]
  - Convulsion [Unknown]
  - Anaemia [Unknown]
  - Dizziness [Unknown]
  - Abdominal pain [Unknown]
  - Pollakiuria [Unknown]
  - Intentional product misuse [None]
  - Thrombocytopenia [Unknown]
  - Delusion [Unknown]
  - Tachycardia [Unknown]
  - Altered state of consciousness [Unknown]
  - Nervous system disorder [Unknown]
  - Dysuria [Unknown]
  - Nausea [Unknown]
